FAERS Safety Report 8226948-8 (Version None)
Quarter: 2012Q1

REPORT INFORMATION
  Report Type: 
  Country: None (occurrence: None)
  Receive Date: 20120322
  Receipt Date: 20120130
  Transmission Date: 20120608
  Serious: No
  Sender: FDA-Public Use
  Company Number: US-MYLANLABS-2012S1000215

PATIENT
  Age: 7 Decade
  Sex: Female

DRUGS (4)
  1. PROPRANOLOL HYDROCHLORIDE [Suspect]
     Indication: MIGRAINE
  2. PROPRANOLOL HYDROCHLORIDE [Suspect]
     Indication: MIGRAINE
  3. PROPRANOLOL HYDROCHLORIDE [Suspect]
     Indication: ESSENTIAL TREMOR
  4. PROPRANOLOL HYDROCHLORIDE [Suspect]
     Indication: ESSENTIAL TREMOR

REACTIONS (2)
  - GLUCOSE TOLERANCE IMPAIRED [None]
  - THYROID CYST [None]
